FAERS Safety Report 9240546 (Version 2)
Quarter: 2013Q2

REPORT INFORMATION
  Report Type: Report from Study
  Country: JP (occurrence: JP)
  Receive Date: 20130418
  Receipt Date: 20130430
  Transmission Date: 20140414
  Serious: Yes (Hospitalization, Other)
  Sender: FDA-Public Use
  Company Number: JP-OTSUKA-JP-2013-10929

PATIENT
  Age: 79 Year
  Sex: Male

DRUGS (19)
  1. SAMSCA [Suspect]
     Indication: FLUID RETENTION
     Dosage: 7.5 MG MILLIGRAM(S), QAM
     Route: 048
     Dates: start: 20121101
  2. SAMSCA [Suspect]
     Dosage: UNK UNKNOWN, UNKNOWN
     Route: 048
     Dates: end: 20121105
  3. SOLITA T [Concomitant]
     Indication: INFUSION
     Dosage: 500 ML MILLILITRE(S), DAILY DOSE
     Route: 042
     Dates: end: 20121114
  4. BAYASPIRIN [Concomitant]
     Dosage: 100 MG MILLIGRAM(S), DAILY DOSE
     Route: 048
  5. PLAVIX [Concomitant]
     Dosage: 75 MG MILLIGRAM(S), DAILY DOSE
     Route: 048
  6. MICARDIS [Concomitant]
     Dosage: 80 MG MILLIGRAM(S), DAILY DOSE
     Route: 048
  7. BENIDIPINE HYDROCHLORIDE [Concomitant]
     Dosage: 12 MG MILLIGRAM(S), DAILY DOSE
     Route: 048
  8. FUROSEMIDE [Concomitant]
     Indication: CARDIAC FAILURE
     Dosage: 30 MG MILLIGRAM(S), DAILY DOSE
     Route: 048
  9. ARTIST [Concomitant]
     Indication: CARDIAC FAILURE
     Dosage: 20 MG MILLIGRAM(S), DAILY DOSE
     Route: 048
  10. ETHYL ICOSAPENTATE [Concomitant]
     Dosage: 1800 MG MILLIGRAM(S), DAILY DOSE
     Route: 048
  11. PARIET [Concomitant]
     Dosage: 20 MG MILLIGRAM(S), DAILY DOSE
     Route: 048
  12. NICORANDIS [Concomitant]
     Dosage: 15 MG MILLIGRAM(S), DAILY DOSE
     Route: 048
  13. DOXAZOSIN [Concomitant]
     Dosage: 4 MG MILLIGRAM(S), DAILY DOSE
     Route: 048
  14. CRESTOR [Concomitant]
     Dosage: 2.5 MG MILLIGRAM(S), DAILY DOSE
     Route: 048
  15. NOVOLIN 30R [Concomitant]
     Dosage: 16 IU, DAILY DOSE
     Route: 058
  16. MYOCOR [Concomitant]
     Indication: CARDIAC FAILURE
     Dosage: 125 MG MILLIGRAM(S), DAILY DOSE
     Route: 042
     Dates: start: 20121026, end: 20121119
  17. LASIX [Concomitant]
     Indication: CARDIAC FAILURE
     Dosage: 40 MG MILLIGRAM(S), DAILY DOSE
     Route: 042
     Dates: start: 20121027, end: 20121027
  18. LASIX [Concomitant]
     Dosage: 20 MG MILLIGRAM(S), DAILY DOSE
     Route: 042
     Dates: start: 20121031, end: 20121031
  19. HANP [Concomitant]
     Indication: CARDIAC FAILURE
     Dosage: 2160 MCG, DAILY DOSE
     Route: 042
     Dates: start: 20121028, end: 20121113

REACTIONS (3)
  - Nephrogenic anaemia [Not Recovered/Not Resolved]
  - Renal failure [Recovering/Resolving]
  - Anaemia [Recovering/Resolving]
